FAERS Safety Report 5330451-2 (Version None)
Quarter: 2007Q2

REPORT INFORMATION
  Report Type: 
  Country: None (occurrence: None)
  Receive Date: 20070514
  Receipt Date: 20070430
  Transmission Date: 20071010
  Serious: Yes (Other)
  Sender: FDA-Public Use
  Company Number: B0469807A

PATIENT
  Age: 50 Year
  Sex: Female

DRUGS (2)
  1. ACYCLOVIR [Suspect]
     Indication: RETINAL DISORDER
     Dosage: SEE DOSAGE TEXT/INTRAVENOUS
     Route: 042
  2. ASPIRIN [Concomitant]

REACTIONS (5)
  - DEHYDRATION [None]
  - NEPHROPATHY TOXIC [None]
  - REFUSAL OF TREATMENT BY PATIENT [None]
  - RENAL FAILURE ACUTE [None]
  - SCAR [None]
